FAERS Safety Report 7012703-3 (Version None)
Quarter: 2010Q3

REPORT INFORMATION
  Report Type: 
  Country: None (occurrence: None)
  Receive Date: 20100924
  Receipt Date: 20100914
  Transmission Date: 20110219
  Serious: Yes (Death, Hospitalization, Other)
  Sender: FDA-Public Use
  Company Number: US-ROCHE-728696

PATIENT
  Age: 83 Year
  Sex: Male
  Weight: 82.5 kg

DRUGS (2)
  1. BEVACIZUMAB [Suspect]
     Indication: LUNG ADENOCARCINOMA
     Route: 042
     Dates: start: 20090630
  2. ERLOTINIB HYDROCHLORIDE [Suspect]
     Dosage: TOTAL DOSE ADMINISTERED THIS COURSE: 2550 MG, LAST ADMINISTERED DATE: 09 SPETEMBER 2010, CYCLE 20
     Route: 048
     Dates: start: 20090130

REACTIONS (4)
  - EMPYEMA [None]
  - MALIGNANT NEOPLASM PROGRESSION [None]
  - PNEUMONIA [None]
  - WOUND DEHISCENCE [None]
